FAERS Safety Report 21775484 (Version 1)
Quarter: 2022Q4

REPORT INFORMATION
  Report Type: Spontaneous
  Country: IT (occurrence: IT)
  Receive Date: 20221226
  Receipt Date: 20221226
  Transmission Date: 20230112
  Serious: Yes (Hospitalization, Other)
  Sender: FDA-Public Use
  Company Number: None

PATIENT
  Age: 88 Year
  Sex: Male

DRUGS (7)
  1. ASPIRIN [Suspect]
     Active Substance: ASPIRIN
     Indication: Cardiovascular event prophylaxis
     Dosage: 100 MG, CONT
     Route: 048
  2. CLOPIDOGREL BISULFATE [Suspect]
     Active Substance: CLOPIDOGREL BISULFATE
     Indication: Cardiovascular event prophylaxis
     Dosage: 75 MG, CONT
     Route: 048
     Dates: start: 20220907, end: 20221019
  3. NEBIVOLOL [Concomitant]
     Active Substance: NEBIVOLOL
     Dosage: NEBIVOLOL 5MG, 1 TABLET/DAY
     Route: 048
  4. SIMVASTATIN [Concomitant]
     Active Substance: SIMVASTATIN
     Dosage: SIMVASTATINA 20MG
  5. FIDATO [Concomitant]
     Active Substance: CEFTRIAXONE SODIUM
     Dosage: FIDATO 2G, UNKNOWN FREQUENCY OF ADMINISTRATION.
  6. CANDESARTAN CILEXETIL [Concomitant]
     Active Substance: CANDESARTAN CILEXETIL
     Dosage: BLOPRESS 32MG, 1 TABLET/DAY
     Route: 048
  7. LERCANIDIPINE HYDROCHLORIDE [Concomitant]
     Active Substance: LERCANIDIPINE HYDROCHLORIDE
     Dosage: ZANEDIP 20MG, 1 TABLET/DAY
     Route: 048

REACTIONS (4)
  - Haemorrhage urinary tract [Recovered/Resolved]
  - Haematuria [Recovered/Resolved]
  - Dysuria [Recovered/Resolved]
  - Dysuria [Recovered/Resolved]

NARRATIVE: CASE EVENT DATE: 20220917
